FAERS Safety Report 5624865-0 (Version None)
Quarter: 2008Q1

REPORT INFORMATION
  Report Type: 
  Country: None (occurrence: None)
  Receive Date: 20080208
  Receipt Date: 20080125
  Transmission Date: 20080703
  Serious: Yes (Other)
  Sender: FDA-Public Use
  Company Number: US021790

PATIENT
  Age: 42 Year
  Sex: Female
  Weight: 95.2554 kg

DRUGS (10)
  1. PROVIGIL [Suspect]
     Indication: NARCOLEPSY
     Dosage: 200 MG BID ORAL
     Route: 048
     Dates: start: 20000101, end: 20070831
  2. PROVIGIL [Suspect]
     Indication: NARCOLEPSY
     Dosage: 200 MG BID ORAL
     Route: 048
     Dates: start: 20070901
  3. GLUCOPHAGE [Suspect]
     Indication: DIABETES MELLITUS
     Dosage: 1000 MG BID ORAL
     Route: 048
     Dates: start: 20070501, end: 20070831
  4. GLUCOPHAGE [Suspect]
     Indication: DIABETES MELLITUS
     Dosage: 1000 MG BID ORAL
     Route: 048
     Dates: start: 20070901
  5. IMODIUM ADVANCED [Suspect]
     Dosage: PRN ORAL
     Route: 048
  6. AMBIEN [Concomitant]
  7. RITALIN [Concomitant]
  8. LANTUS [Concomitant]
  9. PRAVACHOL [Concomitant]
  10. COQ10 [Concomitant]

REACTIONS (3)
  - ANAPHYLACTIC REACTION [None]
  - BLOOD GLUCOSE DECREASED [None]
  - DEVICE INTERACTION [None]
